FAERS Safety Report 7458291-9 (Version None)
Quarter: 2011Q2

REPORT INFORMATION
  Report Type: 
  Country: None (occurrence: None)
  Receive Date: 20110503
  Receipt Date: 20110503
  Transmission Date: 20111010
  Serious: No
  Sender: FDA-Public Use
  Company Number: None

PATIENT
  Age: 51 Year
  Sex: Female
  Weight: 59.8748 kg

DRUGS (1)
  1. CIPROFLOXACIN [Suspect]
     Indication: URINARY TRACT INFECTION
     Dosage: 500 MG. EVERY 12 HOURS PO
     Route: 048
     Dates: start: 20110427, end: 20110428

REACTIONS (4)
  - PAIN IN EXTREMITY [None]
  - NECK PAIN [None]
  - ARTHRALGIA [None]
  - TENDONITIS [None]
